FAERS Safety Report 6614280-5 (Version None)
Quarter: 2010Q1

REPORT INFORMATION
  Report Type: 
  Country: None (occurrence: None)
  Receive Date: 20100304
  Receipt Date: 20100302
  Transmission Date: 20100710
  Serious: Yes (Other)
  Sender: FDA-Public Use
  Company Number: US-ROXANE LABORATORIES, INC.-2010-RO-00221RO

PATIENT
  Age: 73 Year
  Sex: Male
  Weight: 93 kg

DRUGS (11)
  1. LEVETIRACETAM [Suspect]
     Indication: COMPLEX PARTIAL SEIZURES
     Dosage: 500 MG
  2. LEVETIRACETAM [Suspect]
     Dosage: 1000 MG
  3. FUROSEMIDE [Suspect]
     Indication: HYPERTENSION
     Dosage: 80 MG
  4. CARBIDOPA-LEVODOPA [Suspect]
     Indication: PARKINSON'S DISEASE
  5. DILTIAZEM HCL [Suspect]
     Indication: HYPERTENSION
     Dosage: 360 MG
  6. LISINOPRIL [Suspect]
     Indication: HYPERTENSION
     Dosage: 40 MG
  7. DOCUSATE SODIUM [Suspect]
     Indication: CONSTIPATION
     Dosage: 200 MG
  8. DOXAZOSIN MESYLATE [Suspect]
     Indication: BENIGN PROSTATIC HYPERPLASIA
     Dosage: 4 MG
  9. FERROUS SULFATE TAB [Suspect]
     Indication: ANAEMIA OF CHRONIC DISEASE
     Dosage: 325 MG
  10. SIMVASTATIN [Suspect]
     Indication: HYPERLIPIDAEMIA
     Dosage: 40 MG
  11. OXYBUTYNIN [Suspect]
     Indication: URINARY INCONTINENCE
     Dosage: 5 MG

REACTIONS (2)
  - COMPLEX PARTIAL SEIZURES [None]
  - DEPRESSION [None]
